FAERS Safety Report 4377346-9 (Version None)
Quarter: 2004Q2

REPORT INFORMATION
  Report Type: 
  Country: None (occurrence: None)
  Receive Date: 20040609
  Receipt Date: 20040407
  Transmission Date: 20050107
  Serious: No
  Sender: FDA-Public Use
  Company Number: 2004208515US

PATIENT
  Age: 54 Year
  Sex: Male

DRUGS (5)
  1. BEXTRA [Suspect]
     Indication: ARTHRITIS
     Dates: start: 20040301, end: 20040407
  2. MULTIVITAMIN [Concomitant]
  3. LIPITOR [Concomitant]
  4. VICODIN [Concomitant]
  5. TUSSIN [Concomitant]

REACTIONS (2)
  - JOINT STIFFNESS [None]
  - PRODUCTIVE COUGH [None]
